FAERS Safety Report 16462918 (Version 2)
Quarter: 2020Q3

REPORT INFORMATION
  Report Type: Report from Study
  Country: US (occurrence: US)
  Receive Date: 20190621
  Receipt Date: 20200824
  Transmission Date: 20201102
  Serious: Yes (Other)
  Sender: FDA-Public Use
  Company Number: US-BEH-2019099988

PATIENT
  Age: 73 Year
  Sex: Male
  Weight: 122.45 kg

DRUGS (2)
  1. ZEMAIRA [Suspect]
     Active Substance: .ALPHA.1-PROTEINASE INHIBITOR HUMAN
     Indication: ALPHA-1 ANTITRYPSIN DEFICIENCY
     Dosage: UNK, QMT
     Route: 042
  2. ZEMAIRA [Suspect]
     Active Substance: .ALPHA.1-PROTEINASE INHIBITOR HUMAN
     Indication: ALPHA-1 ANTITRYPSIN DEFICIENCY
     Dosage: UNK, QMT
     Route: 042

REACTIONS (5)
  - Eyelid disorder [Unknown]
  - Basal cell carcinoma [Unknown]
  - Skin cancer [Unknown]
  - Malignant melanoma [Unknown]
  - Squamous cell carcinoma of skin [Unknown]
